FAERS Safety Report 8585408-5 (Version None)
Quarter: 2012Q3

REPORT INFORMATION
  Report Type: 
  Country: None (occurrence: None)
  Receive Date: 20120810
  Receipt Date: 20120731
  Transmission Date: 20120928
  Serious: Yes (Other)
  Sender: FDA-Public Use
  Company Number: NL-009507513-1208NLD003301

PATIENT

DRUGS (9)
  1. METHOTREXATE [Concomitant]
     Indication: ACUTE LYMPHOCYTIC LEUKAEMIA
     Dosage: 500 MG/M2, ON DAY 4
  2. METHOTREXATE [Concomitant]
     Dosage: 500 MG/M2, ON DAY 11
  3. ETOPOSIDE [Concomitant]
     Dosage: 120 MG/M2, ON DAY 8
     Route: 041
  4. ORADEXON ORGANON [Suspect]
     Indication: ACUTE LYMPHOCYTIC LEUKAEMIA
     Dosage: UNK UNK, QD
     Route: 048
  5. DOXORUBICIN HYDROCHLORIDE [Concomitant]
     Indication: ACUTE LYMPHOCYTIC LEUKAEMIA
     Dosage: 40 MG/M2, DAY 2-4 (}60 YEAR: 30 MG/M2 PER DAY)
  6. CYTARABINE [Concomitant]
     Dosage: 200 MG/M2, ON DAY 8
     Route: 041
  7. VINCRISTINE SULFATE [Concomitant]
     Indication: ACUTE LYMPHOCYTIC LEUKAEMIA
     Dosage: 1 MG, DAY 1, 8 AND 15
     Route: 041
  8. CYTARABINE [Concomitant]
     Indication: ACUTE LYMPHOCYTIC LEUKAEMIA
     Dosage: 200 MG/M2, ON DAY 1
     Route: 041
  9. ETOPOSIDE [Concomitant]
     Indication: ACUTE LYMPHOCYTIC LEUKAEMIA
     Dosage: 120 MG/M2, ON DAY 1
     Route: 041

REACTIONS (1)
  - HEPATIC FUNCTION ABNORMAL [None]
